FAERS Safety Report 6587338-7 (Version None)
Quarter: 2010Q1

REPORT INFORMATION
  Report Type: 
  Country: None (occurrence: None)
  Receive Date: 20100217
  Receipt Date: 20090608
  Transmission Date: 20100710
  Serious: No
  Sender: FDA-Public Use
  Company Number: US-ALLERGAN-0906781US

PATIENT
  Age: 67 Year
  Sex: Female

DRUGS (7)
  1. BOTOX [Suspect]
     Indication: BLEPHAROSPASM
     Dosage: 250 UNITS, SINGLE
     Route: 030
     Dates: start: 20090504, end: 20090504
  2. BOTOX [Suspect]
     Indication: APRAXIA
     Dosage: 5 UNITS, SINGLE
     Route: 030
     Dates: start: 20081101, end: 20081101
  3. BOTOX [Suspect]
     Indication: TORTICOLLIS
  4. CELLUVISC [Concomitant]
     Indication: DRY EYE
     Dosage: UNK, QHS
  5. BACITRACIN [Concomitant]
     Indication: BLEPHARITIS
     Dosage: UNK, UNK
     Route: 061
  6. FLU SHOT [Concomitant]
  7. SHINGLES SHOT [Concomitant]

REACTIONS (3)
  - EYELID PTOSIS [None]
  - LACRIMATION INCREASED [None]
  - THERAPEUTIC RESPONSE DECREASED [None]
